FAERS Safety Report 21211584 (Version 1)
Quarter: 2022Q3

REPORT INFORMATION
  Report Type: Spontaneous
  Country: DE (occurrence: DE)
  Receive Date: 20220815
  Receipt Date: 20220815
  Transmission Date: 20221026
  Serious: Yes (Other)
  Sender: FDA-Public Use
  Company Number: DE-NOVARTISPH-NVSC2022DE180005

PATIENT
  Age: 56 Year
  Sex: Male

DRUGS (4)
  1. PREDNISOLONE [Suspect]
     Active Substance: PREDNISOLONE
     Indication: Acute hepatic failure
     Dosage: TOTAL 550 MG IN 3 DAYS
     Route: 065
  2. ACETYLCYSTEINE [Concomitant]
     Active Substance: ACETYLCYSTEINE
     Indication: Acute hepatic failure
     Dosage: UNK
     Route: 065
  3. CIDOFOVIR [Concomitant]
     Active Substance: CIDOFOVIR
     Indication: Pneumonia adenoviral
     Dosage: 450 MG, UNKNOWN
     Route: 065
  4. PROBENECID [Concomitant]
     Active Substance: PROBENECID
     Indication: Pneumonia adenoviral
     Dosage: UNK
     Route: 065

REACTIONS (3)
  - Hepatitis [Unknown]
  - Condition aggravated [Unknown]
  - Product use in unapproved indication [Unknown]
